FAERS Safety Report 22221655 (Version 1)
Quarter: 2023Q2

REPORT INFORMATION
  Report Type: Spontaneous
  Country: IN (occurrence: IN)
  Receive Date: 20230418
  Receipt Date: 20230418
  Transmission Date: 20230722
  Serious: Yes (Other)
  Sender: FDA-Public Use
  Company Number: ALC2023IN002002

PATIENT
  Age: 24 Year
  Sex: Male

DRUGS (3)
  1. NETARSUDIL [Suspect]
     Active Substance: NETARSUDIL
     Indication: Transplant rejection
     Dosage: UNK
     Route: 047
  2. NETARSUDIL [Suspect]
     Active Substance: NETARSUDIL
     Indication: Intraocular pressure test
  3. NETARSUDIL [Suspect]
     Active Substance: NETARSUDIL
     Indication: Corneal oedema

REACTIONS (2)
  - Corneal oedema [Unknown]
  - Off label use [Unknown]
